FAERS Safety Report 5574157-3 (Version None)
Quarter: 2007Q4

REPORT INFORMATION
  Report Type: 
  Country: None (occurrence: None)
  Receive Date: 20071221
  Receipt Date: 20071210
  Transmission Date: 20080405
  Serious: Yes (Hospitalization)
  Sender: FDA-Public Use
  Company Number: S07-USA-06282-01

PATIENT
  Age: 77 Year
  Sex: Male

DRUGS (5)
  1. LEXAPRO [Suspect]
     Indication: DEPRESSION
     Dosage: 10 MG QD PO
     Route: 048
     Dates: start: 20071126
  2. TOPROL-XL [Suspect]
     Indication: HYPERTENSION
  3. TOPROL-XL [Suspect]
     Indication: HYPERTENSION
  4. LIPITOR [Concomitant]
  5. PAXIL [Concomitant]

REACTIONS (1)
  - HEART RATE DECREASED [None]
